FAERS Safety Report 4781431-7 (Version None)
Quarter: 2005Q3

REPORT INFORMATION
  Report Type: 
  Country: None (occurrence: None)
  Receive Date: 20050927
  Receipt Date: 20050914
  Transmission Date: 20060218
  Serious: Yes (Other)
  Sender: FDA-Public Use
  Company Number: 2005130696

PATIENT

DRUGS (1)
  1. METHYLPREDNISOLONE [Suspect]
     Indication: MIXED CONNECTIVE TISSUE DISEASE

REACTIONS (1)
  - T-CELL TYPE ACUTE LEUKAEMIA [None]
